FAERS Safety Report 5573982-2 (Version None)
Quarter: 2007Q4

REPORT INFORMATION
  Report Type: 
  Country: None (occurrence: None)
  Receive Date: 20071226
  Receipt Date: 20071216
  Transmission Date: 20080405
  Serious: Yes (Hospitalization)
  Sender: FDA-Public Use
  Company Number: ES-ABBOTT-07P-144-0429903-00

PATIENT
  Age: 65 Year
  Sex: Female

DRUGS (7)
  1. LOPINAVIR AND RITONAVIR [Suspect]
     Indication: HIV INFECTION
     Route: 065
     Dates: start: 20040201, end: 20040801
  2. LOPINAVIR AND RITONAVIR [Suspect]
     Route: 065
     Dates: start: 20030301
  3. TENOFOVIR [Interacting]
     Indication: HIV INFECTION
     Route: 065
     Dates: start: 20040601, end: 20040801
  4. TENOFOVIR [Interacting]
     Route: 065
     Dates: start: 20030301
  5. DIDANOSINE [Interacting]
     Indication: HIV INFECTION
     Route: 065
     Dates: start: 20030601
  6. T20 (T20) [Interacting]
     Indication: HIV INFECTION
     Route: 065
     Dates: start: 20040201, end: 20040801
  7. ABACAVIR [Concomitant]
     Indication: HIV INFECTION
     Route: 065
     Dates: start: 20030301

REACTIONS (3)
  - DRUG INTERACTION [None]
  - FANCONI SYNDROME [None]
  - RENAL FAILURE ACUTE [None]
